FAERS Safety Report 9334356 (Version 2)
Quarter: 2013Q4

REPORT INFORMATION
  Report Type: Spontaneous
  Country: US (occurrence: US)
  Receive Date: 20130606
  Receipt Date: 20131008
  Transmission Date: 20140711
  Serious: No
  Sender: FDA-Public Use
  Company Number: US-AMGEN-USASP2013032328

PATIENT
  Age: 69 Year
  Sex: Female
  Weight: 68.03 kg

DRUGS (1)
  1. PROLIA [Suspect]
     Indication: OSTEOPOROSIS POSTMENOPAUSAL
     Dosage: UNK
     Dates: start: 20130503

REACTIONS (3)
  - Dizziness [Unknown]
  - Migraine [Unknown]
  - Fatigue [Unknown]
